FAERS Safety Report 20527133 (Version 1)
Quarter: 2022Q1

REPORT INFORMATION
  Report Type: Spontaneous
  Country: US (occurrence: US)
  Receive Date: 20220228
  Receipt Date: 20220228
  Transmission Date: 20220424
  Serious: No
  Sender: FDA-Public Use
  Company Number: US-GILEAD-2022-0571350

PATIENT
  Sex: Male

DRUGS (13)
  1. EPCLUSA [Suspect]
     Active Substance: SOFOSBUVIR\VELPATASVIR
     Indication: Chronic hepatitis C
     Dosage: 1 DOSAGE FORM, QD
     Route: 048
  2. RIBAVIRIN [Concomitant]
     Active Substance: RIBAVIRIN
  3. ALBUTEROL [Concomitant]
     Active Substance: ALBUTEROL
  4. GABAPENTIN [Concomitant]
     Active Substance: GABAPENTIN
  5. HYDROXYZINE HYDROCHLORIDE [Concomitant]
     Active Substance: HYDROXYZINE HYDROCHLORIDE
  6. POTASSIUM [Concomitant]
     Active Substance: POTASSIUM
  7. SPIRONOLACTONE [Concomitant]
     Active Substance: SPIRONOLACTONE
  8. FERROUS SULFATE [Concomitant]
     Active Substance: FERROUS SULFATE
  9. THIAMINE HYDROCHLORIDE [Concomitant]
     Active Substance: THIAMINE HYDROCHLORIDE
  10. FUROSEMIDE [Concomitant]
     Active Substance: FUROSEMIDE
  11. CITALOPRAM [Concomitant]
     Active Substance: CITALOPRAM HYDROBROMIDE
  12. VITAMINS NOS [Concomitant]
     Active Substance: VITAMINS
  13. FOLIC ACID [Concomitant]
     Active Substance: FOLIC ACID

REACTIONS (2)
  - Headache [Unknown]
  - Therapy change [Unknown]
